FAERS Safety Report 10100427 (Version 1)
Quarter: 2014Q2

REPORT INFORMATION
  Report Type: Spontaneous
  Country: CN (occurrence: CN)
  Receive Date: 20140423
  Receipt Date: 20140423
  Transmission Date: 20141212
  Serious: Yes (Other)
  Sender: FDA-Public Use
  Company Number: CN-ABBVIE-14P-035-1228259-00

PATIENT
  Sex: 0

DRUGS (5)
  1. VALPROATE SODIUM/VALPROIC ACID [Suspect]
     Indication: EPILEPSY
     Route: 048
     Dates: start: 2004
  2. VALPROATE SODIUM/VALPROIC ACID [Suspect]
     Route: 048
     Dates: start: 2006, end: 201311
  3. VALPROATE SODIUM/VALPROIC ACID [Suspect]
     Route: 048
     Dates: start: 201311
  4. OXCARBAZEPINE [Concomitant]
     Indication: PRODUCT USED FOR UNKNOWN INDICATION
     Dates: start: 201311
  5. CARBAMAZEPINE [Concomitant]
     Indication: PRODUCT USED FOR UNKNOWN INDICATION
     Dates: start: 201311

REACTIONS (3)
  - Glioma [Recovered/Resolved]
  - Epilepsy [Recovered/Resolved]
  - Moaning [Recovered/Resolved]
